FAERS Safety Report 17991912 (Version 5)
Quarter: 2020Q4

REPORT INFORMATION
  Report Type: Report from Study
  Country: US (occurrence: US)
  Receive Date: 20200707
  Receipt Date: 20201127
  Transmission Date: 20210113
  Serious: No
  Sender: FDA-Public Use
  Company Number: NVSC2020US189692

PATIENT
  Sex: Female

DRUGS (1)
  1. COSENTYX [Suspect]
     Active Substance: SECUKINUMAB
     Indication: ANKYLOSING SPONDYLITIS
     Dosage: UNK UNK, QMO
     Route: 058
     Dates: start: 202004

REACTIONS (3)
  - Drug ineffective [Unknown]
  - Pustular psoriasis [Unknown]
  - Psoriasis [Unknown]
